FAERS Safety Report 18558587 (Version 1)
Quarter: 2020Q4

REPORT INFORMATION
  Report Type: Spontaneous
  Country: US (occurrence: US)
  Receive Date: 20201128
  Receipt Date: 20201128
  Transmission Date: 20210114
  Serious: Yes (Other)
  Sender: FDA-Public Use
  Company Number: None

PATIENT
  Age: 35 Year
  Sex: Male
  Weight: 127.01 kg

DRUGS (1)
  1. ALBUTEROL SULFATE 90 MCG INHALER [Suspect]
     Active Substance: ALBUTEROL SULFATE
     Indication: ASTHMA
     Dosage: 2 PUFFS

REACTIONS (3)
  - Asthma [None]
  - Intentional product misuse [None]
  - Device malfunction [None]

NARRATIVE: CASE EVENT DATE: 20200701
